FAERS Safety Report 9307884 (Version 1)
Quarter: 2013Q2

REPORT INFORMATION
  Report Type: Spontaneous
  Country: US (occurrence: US)
  Receive Date: 20130524
  Receipt Date: 20130524
  Transmission Date: 20140414
  Serious: Yes (Hospitalization)
  Sender: FDA-Public Use
  Company Number: US-BRISTOL-MYERS SQUIBB COMPANY-18910729

PATIENT
  Age: 63 Year
  Sex: Male

DRUGS (1)
  1. BYDUREON [Suspect]

REACTIONS (2)
  - Cystitis haemorrhagic [Unknown]
  - Prostatitis [Unknown]
